FAERS Safety Report 20411854 (Version 2)
Quarter: 2022Q1

REPORT INFORMATION
  Report Type: Report from Study
  Country: CA (occurrence: None)
  Receive Date: 20220201
  Receipt Date: 20220222
  Transmission Date: 20220423
  Serious: Yes (Other)
  Sender: FDA-Public Use
  Company Number: 2022A024045

PATIENT
  Sex: Female

DRUGS (9)
  1. FASENRA [Suspect]
     Active Substance: BENRALIZUMAB
     Indication: Asthma
     Dosage: 30.0MG UNKNOWN
     Route: 058
     Dates: start: 20200115
  2. FASENRA [Suspect]
     Active Substance: BENRALIZUMAB
     Indication: Asthma
     Dosage: 30.0MG UNKNOWN
     Route: 058
     Dates: start: 20220119
  3. ZENHALE [Concomitant]
     Active Substance: FORMOTEROL FUMARATE\MOMETASONE FUROATE
     Dosage: 200 MG, 2 INHALATION, TWICE A DAY
     Route: 055
  4. NEBUL PULMICORT [Concomitant]
     Dosage: 0.125 MG PAR ML 2X/JOUR
  5. ATROVENT [Concomitant]
     Active Substance: IPRATROPIUM BROMIDE
     Dosage: 20 MCG, AS NEEDED
  6. VENTOLIN [Concomitant]
     Active Substance: ALBUTEROL SULFATE
     Dosage: 100 MCG, AS NEEDED
  7. MONTELUKAST [Concomitant]
     Active Substance: MONTELUKAST SODIUM
  8. NEBULIZER SALBUTAMOL SULPHATE [Concomitant]
     Dosage: 50ML/1ML, AS NEEDED
  9. PREDNISONE [Concomitant]
     Active Substance: PREDNISONE
     Dosage: 5MG - 2 CO 1X PER DAY

REACTIONS (11)
  - Blister infected [Unknown]
  - Infection [Recovering/Resolving]
  - Rash vesicular [Recovering/Resolving]
  - Acne [Recovering/Resolving]
  - Rash [Unknown]
  - Dermatitis allergic [Unknown]
  - Sensitive skin [Unknown]
  - Erythema [Unknown]
  - Peripheral coldness [Unknown]
  - Ill-defined disorder [Unknown]
  - Inappropriate schedule of product administration [Unknown]
